FAERS Safety Report 9761296 (Version 1)
Quarter: 2013Q4

REPORT INFORMATION
  Report Type: Spontaneous
  Country: US (occurrence: US)
  Receive Date: 20131216
  Receipt Date: 20131216
  Transmission Date: 20140711
  Serious: Yes (Other)
  Sender: FDA-Public Use
  Company Number: US-BAYER-2013-151005

PATIENT
  Age: 53 Year
  Sex: Female

DRUGS (2)
  1. NAPROXEN SODIUM ({= 220 MG) [Suspect]
     Dosage: TWICE DAILY
  2. ESOMEPRAZOLE [Concomitant]
     Dosage: TWICE DAILY

REACTIONS (1)
  - Large intestinal ulcer [None]
